FAERS Safety Report 4563773-3 (Version None)
Quarter: 2005Q1

REPORT INFORMATION
  Report Type: 
  Country: None (occurrence: None)
  Receive Date: 20050128
  Receipt Date: 20050121
  Transmission Date: 20050727
  Serious: Yes (Hospitalization)
  Sender: FDA-Public Use
  Company Number: PHRM2005FR00630

PATIENT
  Age: 56 Year
  Sex: Female

DRUGS (4)
  1. KETOPROFEN [Concomitant]
     Dosage: 1 DF, QD
     Route: 048
     Dates: start: 20040901
  2. DAFALGAN [Concomitant]
     Indication: PYREXIA
     Dosage: 2 G ON 24/10 - 1 G ON 25/10
     Route: 048
     Dates: start: 20041024, end: 20041025
  3. CLAMOXYL [Concomitant]
     Indication: URINARY TRACT INFECTION
  4. TAREG [Suspect]
     Dosage: 80 MG, QD
     Route: 048
     Dates: start: 20040701

REACTIONS (6)
  - ALANINE AMINOTRANSFERASE INCREASED [None]
  - ASPARTATE AMINOTRANSFERASE INCREASED [None]
  - BODY TEMPERATURE INCREASED [None]
  - FATIGUE [None]
  - TRANSAMINASES INCREASED [None]
  - URINARY TRACT INFECTION [None]
